FAERS Safety Report 23738174 (Version 1)
Quarter: 2024Q2

REPORT INFORMATION
  Report Type: Report from Study
  Country: US (occurrence: None)
  Receive Date: 20240412
  Receipt Date: 20240412
  Transmission Date: 20240716
  Serious: Yes (Other)
  Sender: FDA-Public Use
  Company Number: 2024A083436

PATIENT
  Sex: Male

DRUGS (1)
  1. TEZSPIRE [Suspect]
     Active Substance: TEZEPELUMAB-EKKO

REACTIONS (10)
  - Cerebrovascular accident [Unknown]
  - Rhinitis [Unknown]
  - Obstructive airways disorder [Unknown]
  - Asthma [Unknown]
  - Bronchitis chronic [Unknown]
  - Gastrooesophageal reflux disease [Unknown]
  - Diabetes mellitus [Unknown]
  - Hypertension [Unknown]
  - Hypoxia [Unknown]
  - Dysphagia [Unknown]
